FAERS Safety Report 24287234 (Version 1)
Quarter: 2024Q3

REPORT INFORMATION
  Report Type: Spontaneous
  Country: KR (occurrence: KR)
  Receive Date: 20240905
  Receipt Date: 20240905
  Transmission Date: 20241017
  Serious: Yes (Other)
  Sender: MERCK
  Company Number: KR-009507513-2409KOR001035

PATIENT
  Sex: Male

DRUGS (1)
  1. EMEND (FOSAPREPITANT DIMEGLUMINE) [Suspect]
     Active Substance: FOSAPREPITANT DIMEGLUMINE
     Indication: Lung neoplasm malignant
     Dosage: 150 MILLIGRAM, QD
     Route: 042
     Dates: start: 20231006, end: 20231006

REACTIONS (2)
  - Loss of consciousness [Recovered/Resolved]
  - Tremor [Recovered/Resolved]

NARRATIVE: CASE EVENT DATE: 20231006
